FAERS Safety Report 25945038 (Version 1)
Quarter: 2025Q4

REPORT INFORMATION
  Report Type: Spontaneous
  Country: US (occurrence: US)
  Receive Date: 20251021
  Receipt Date: 20251021
  Transmission Date: 20260117
  Serious: No
  Sender: Phathom Pharmaceuticals
  Company Number: US-PHATHOM PHARMACEUTICALS INC.-2025PHT01992

PATIENT
  Age: 65 Year
  Sex: Female

DRUGS (1)
  1. VOQUEZNA [Suspect]
     Active Substance: VONOPRAZAN FUMARATE
     Route: 048

REACTIONS (5)
  - Vision blurred [Unknown]
  - Dizziness [Unknown]
  - Anxiety [Unknown]
  - Abdominal discomfort [Unknown]
  - Vertigo [Unknown]
